FAERS Safety Report 19776003 (Version 1)
Quarter: 2021Q3

REPORT INFORMATION
  Report Type: Report from Study
  Country: US (occurrence: US)
  Receive Date: 20210902
  Receipt Date: 20210902
  Transmission Date: 20211014
  Serious: Yes (Other)
  Sender: FDA-Public Use
  Company Number: US-BIOGEN-2021BI01043917

PATIENT
  Sex: Female

DRUGS (1)
  1. TECFIDERA [Suspect]
     Active Substance: DIMETHYL FUMARATE
     Indication: MULTIPLE SCLEROSIS
     Route: 065
     Dates: start: 20181030

REACTIONS (5)
  - Mental disorder [Unknown]
  - Memory impairment [Unknown]
  - Systemic lupus erythematosus [Unknown]
  - Muscle spasms [Unknown]
  - Gait disturbance [Unknown]
